FAERS Safety Report 17195092 (Version 1)
Quarter: 2019Q4

REPORT INFORMATION
  Report Type: Spontaneous
  Country: US (occurrence: US)
  Receive Date: 20191202
  Receipt Date: 20191202
  Transmission Date: 20200122
  Serious: No
  Sender: FDA-Public Use
  Company Number: None

PATIENT

DRUGS (1)
  1. TRIESENCE [Suspect]
     Active Substance: TRIAMCINOLONE ACETONIDE

REACTIONS (3)
  - Blindness [None]
  - Vitreous floaters [None]
  - Vision blurred [None]

NARRATIVE: CASE EVENT DATE: 20190109
